FAERS Safety Report 15584924 (Version 3)
Quarter: 2018Q4

REPORT INFORMATION
  Report Type: Spontaneous
  Country: US (occurrence: US)
  Receive Date: 20181102
  Receipt Date: 20181119
  Transmission Date: 20190205
  Serious: Yes (Hospitalization)
  Sender: FDA-Public Use
  Company Number: US-AMGEN-USASP2018152634

PATIENT
  Age: 67 Year
  Sex: Female
  Weight: 115.7 kg

DRUGS (1)
  1. NEULASTA [Suspect]
     Active Substance: PEGFILGRASTIM
     Indication: PRODUCT USED FOR UNKNOWN INDICATION
     Dosage: 6 MG, UNK
     Route: 065
     Dates: start: 20180822

REACTIONS (3)
  - Neutrophil count decreased [Recovered/Resolved]
  - Drug dose omission by device [Unknown]
  - Pyrexia [Unknown]

NARRATIVE: CASE EVENT DATE: 20181025
